FAERS Safety Report 6689396-8 (Version None)
Quarter: 2010Q2

REPORT INFORMATION
  Report Type: 
  Country: None (occurrence: None)
  Receive Date: 20100419
  Receipt Date: 20100419
  Transmission Date: 20101027
  Serious: Yes (Hospitalization)
  Sender: FDA-Public Use
  Company Number: None

PATIENT
  Age: 56 Year
  Sex: Male
  Weight: 72 kg

DRUGS (2)
  1. LISINOPRIL [Suspect]
     Indication: HYPERTENSION
     Dosage: 40 MG EVERY DAY PO
     Route: 048
     Dates: start: 20070601, end: 20100417
  2. HYDROXYCHLOROQUINE SULFATE [Suspect]
     Indication: SAPHO SYNDROME
     Dosage: 200 MG BID PO
     Route: 048
     Dates: start: 20100216

REACTIONS (3)
  - ANGIOEDEMA [None]
  - DECREASED APPETITE [None]
  - DYSPNOEA [None]
